FAERS Safety Report 9553436 (Version 1)
Quarter: 2013Q3

REPORT INFORMATION
  Report Type: Spontaneous
  Country: AU (occurrence: AU)
  Receive Date: 20130925
  Receipt Date: 20130925
  Transmission Date: 20140515
  Serious: Yes (Other)
  Sender: FDA-Public Use
  Company Number: AU-PFIZER INC-2013272965

PATIENT
  Sex: Female

DRUGS (1)
  1. LYRICA [Suspect]
     Dosage: 25 MG, 2X/DAY
     Dates: start: 201308

REACTIONS (8)
  - Impaired driving ability [Unknown]
  - Impaired work ability [Unknown]
  - Somnolence [Unknown]
  - Nausea [Unknown]
  - Balance disorder [Unknown]
  - Tinnitus [Unknown]
  - Coordination abnormal [Unknown]
  - Amnesia [Unknown]
